FAERS Safety Report 6133231-3 (Version None)
Quarter: 2009Q1

REPORT INFORMATION
  Report Type: 
  Country: None (occurrence: None)
  Receive Date: 20090325
  Receipt Date: 20090325
  Transmission Date: 20090719
  Serious: Yes (Disabling, Other)
  Sender: FDA-Public Use
  Company Number: None

PATIENT
  Sex: Female
  Weight: 45.8133 kg

DRUGS (2)
  1. TROPICAMIDE [Suspect]
     Indication: OPHTHALMOLOGICAL EXAMINATION
     Dosage: ADMINISTERED BY MD 1X PRIOR TO EXAM OPHTHALMIC
     Route: 047
     Dates: start: 20090212, end: 20090212
  2. NEOFRIN/PHENYLEPHRINE 2.5% OCUSOFT [Suspect]
     Indication: OPHTHALMOLOGICAL EXAMINATION
     Dosage: ADMINISTERED BY MD 1X PRIOR TO EXAM OPHTHALMIC
     Route: 047
     Dates: start: 20090212, end: 20090212

REACTIONS (2)
  - BLEPHARITIS [None]
  - EYE PAIN [None]
